FAERS Safety Report 4470857-7 (Version None)
Quarter: 2004Q4

REPORT INFORMATION
  Report Type: 
  Country: None (occurrence: None)
  Receive Date: 20041011
  Receipt Date: 20040928
  Transmission Date: 20050328
  Serious: Yes (Hospitalization)
  Sender: FDA-Public Use
  Company Number: US-JNJFOC-20040909681

PATIENT
  Age: 22 Year
  Sex: Female
  Weight: 49.9 kg

DRUGS (2)
  1. ORTHO TRI-CYCLEN [Suspect]
     Indication: MENORRHAGIA
     Route: 049
  2. ORTHO TRI-CYCLEN [Suspect]
     Route: 049

REACTIONS (3)
  - ADRENAL HAEMORRHAGE [None]
  - POLYP [None]
  - RECTAL HAEMORRHAGE [None]
